FAERS Safety Report 12741578 (Version 1)
Quarter: 2016Q3

REPORT INFORMATION
  Report Type: Spontaneous
  Country: US (occurrence: US)
  Receive Date: 20160913
  Receipt Date: 20160913
  Transmission Date: 20161109
  Serious: Yes (Hospitalization)
  Sender: FDA-Public Use
  Company Number: None

PATIENT
  Age: 58 Year
  Sex: Male
  Weight: 84.6 kg

DRUGS (1)
  1. TAXOL [Suspect]
     Active Substance: PACLITAXEL
     Dates: end: 20140616

REACTIONS (12)
  - Pyrexia [None]
  - Dyspnoea [None]
  - Pneumonia [None]
  - Fatigue [None]
  - Bone pain [None]
  - Cough [None]
  - Pneumothorax [None]
  - Hypoxia [None]
  - Leukocytosis [None]
  - Hypokalaemia [None]
  - Respiratory failure [None]
  - Hypomagnesaemia [None]

NARRATIVE: CASE EVENT DATE: 20140621
